FAERS Safety Report 24799608 (Version 1)
Quarter: 2025Q1

REPORT INFORMATION
  Report Type: Spontaneous
  Country: GB (occurrence: GB)
  Receive Date: 20250102
  Receipt Date: 20250102
  Transmission Date: 20250409
  Serious: Yes (Hospitalization)
  Sender: MYLAN
  Company Number: GB-MYLANLABS-2024M1117310

PATIENT
  Sex: Male

DRUGS (2)
  1. CLOZARIL [Suspect]
     Active Substance: CLOZAPINE
     Indication: Schizophrenia
     Route: 048
     Dates: start: 20241118
  2. CLOZAPINE [Concomitant]
     Active Substance: CLOZAPINE
     Route: 065

REACTIONS (1)
  - Psychotic symptom [Unknown]

NARRATIVE: CASE EVENT DATE: 20241101
